FAERS Safety Report 7786941-6 (Version None)
Quarter: 2011Q3

REPORT INFORMATION
  Report Type: 
  Country: None (occurrence: None)
  Receive Date: 20110928
  Receipt Date: 20110928
  Transmission Date: 20111222
  Serious: Yes (Hospitalization)
  Sender: FDA-Public Use
  Company Number: None

PATIENT
  Age: 85 Year
  Sex: Female
  Weight: 87.2 kg

DRUGS (5)
  1. DECITABINE [Suspect]
     Indication: MYELODYSPLASTIC SYNDROME
     Dosage: 0.2MG/KG 3X/WK SUB-Q INJ
     Route: 058
     Dates: start: 20110902, end: 20110916
  2. AMLODIPINE [Concomitant]
  3. CIPROFLOXACIN [Concomitant]
  4. TYLENOL-500 [Concomitant]
  5. LISINOPRIL [Concomitant]

REACTIONS (3)
  - FEBRILE NEUTROPENIA [None]
  - CHILLS [None]
  - NASOPHARYNGITIS [None]
